FAERS Safety Report 7280414-5 (Version None)
Quarter: 2011Q1

REPORT INFORMATION
  Report Type: 
  Country: None (occurrence: None)
  Receive Date: 20110208
  Receipt Date: 20110203
  Transmission Date: 20110831
  Serious: Yes (Hospitalization, Other)
  Sender: FDA-Public Use
  Company Number: US-PFIZER INC-2010153405

PATIENT
  Sex: Female

DRUGS (3)
  1. HYDROCHLOROTHIAZIDE [Concomitant]
     Indication: HYPERTENSION
     Dosage: UNK
     Dates: start: 20000101
  2. CHANTIX [Suspect]
     Indication: SMOKING CESSATION THERAPY
     Dosage: 0.5MG/1MG
     Dates: start: 20080901, end: 20081101
  3. ALBUTEROL [Concomitant]
     Indication: ASTHMA
     Dosage: UNK
     Dates: start: 20020101, end: 20090101

REACTIONS (7)
  - INTENTIONAL OVERDOSE [None]
  - CONFUSIONAL STATE [None]
  - SUICIDE ATTEMPT [None]
  - ANXIETY [None]
  - DEPRESSION [None]
  - INSOMNIA [None]
  - AGITATION [None]
